FAERS Safety Report 5752259-6 (Version None)
Quarter: 2008Q2

REPORT INFORMATION
  Report Type: 
  Country: None (occurrence: None)
  Receive Date: 20080527
  Receipt Date: 20080507
  Transmission Date: 20081010
  Serious: Yes (Hospitalization, Other)
  Sender: FDA-Public Use
  Company Number: ALL1-2008-00888

PATIENT
  Age: 57 Year
  Sex: Female
  Weight: 49.9 kg

DRUGS (13)
  1. VYVANSE [Suspect]
     Indication: ATTENTION DEFICIT/HYPERACTIVITY DISORDER
     Dosage: SEE IMAGE
     Route: 048
     Dates: start: 20080401, end: 20080427
  2. VYVANSE [Suspect]
     Indication: ATTENTION DEFICIT/HYPERACTIVITY DISORDER
     Dosage: SEE IMAGE
     Route: 048
     Dates: start: 20080201
  3. VYVANSE [Suspect]
     Indication: ATTENTION DEFICIT/HYPERACTIVITY DISORDER
     Dosage: SEE IMAGE
     Route: 048
     Dates: start: 20080201
  4. SYNTHROID [Concomitant]
  5. PROZAC /00724401/ (FLUOXETINE) [Concomitant]
  6. AVAPRO [Concomitant]
  7. HYDROCODONE W/APAP (HYDROCODONE, PARACETAMOL) [Concomitant]
  8. LUNESTA [Concomitant]
  9. XANAX [Concomitant]
  10. COQ-10 (UBIDECARENONE) [Concomitant]
  11. VITAMIN B COMP /(CYANOCOBALAMIN, PYRIDOXINE HYDROCHLORIDE, THIAMINE HY [Concomitant]
  12. MULTIVITAMIN /00831701/(VITAMINS NOS) [Concomitant]
  13. LYRICA [Concomitant]

REACTIONS (15)
  - ABDOMINAL PAIN [None]
  - ALANINE AMINOTRANSFERASE INCREASED [None]
  - ANOREXIA [None]
  - ASPARTATE AMINOTRANSFERASE INCREASED [None]
  - BACK PAIN [None]
  - BLOOD LACTATE DEHYDROGENASE INCREASED [None]
  - BRUXISM [None]
  - CONDITION AGGRAVATED [None]
  - FATIGUE [None]
  - HEADACHE [None]
  - LIVER DISORDER [None]
  - PAIN [None]
  - TONGUE BITING [None]
  - VIRAL TEST POSITIVE [None]
  - WRONG TECHNIQUE IN DRUG USAGE PROCESS [None]
